FAERS Safety Report 14659970 (Version 1)
Quarter: 2018Q1

REPORT INFORMATION
  Report Type: Spontaneous
  Country: CA (occurrence: CA)
  Receive Date: 20180320
  Receipt Date: 20180320
  Transmission Date: 20180509
  Serious: Yes (Hospitalization)
  Sender: FDA-Public Use
  Company Number: CA-SA-2018SA073230

PATIENT
  Age: 70 Year

DRUGS (1)
  1. OXALIPLATIN. [Suspect]
     Active Substance: OXALIPLATIN
     Route: 051

REACTIONS (4)
  - Hypotension [Unknown]
  - Dysphagia [Unknown]
  - Tremor [Unknown]
  - Dizziness [Unknown]
